FAERS Safety Report 19135397 (Version 1)
Quarter: 2021Q2

REPORT INFORMATION
  Report Type: Spontaneous
  Country: CN (occurrence: CN)
  Receive Date: 20210414
  Receipt Date: 20210414
  Transmission Date: 20210717
  Serious: Yes (Other)
  Sender: FDA-Public Use
  Company Number: CN-PURDUE-USA-2021-0244026

PATIENT
  Age: 61 Year
  Sex: Male
  Weight: 40 kg

DRUGS (1)
  1. OXYCONTIN [Suspect]
     Active Substance: OXYCODONE HYDROCHLORIDE
     Indication: SYMPTOMATIC TREATMENT
     Dosage: 40 MG, BID
     Route: 048
     Dates: start: 20191101, end: 20191113

REACTIONS (3)
  - Somnolence [Recovering/Resolving]
  - Speech disorder [Recovering/Resolving]
  - Altered state of consciousness [Recovering/Resolving]

NARRATIVE: CASE EVENT DATE: 20191101
